FAERS Safety Report 9788169 (Version 1)
Quarter: 2013Q4

REPORT INFORMATION
  Report Type: Spontaneous
  Country: US (occurrence: US)
  Receive Date: 20131230
  Receipt Date: 20131230
  Transmission Date: 20140711
  Serious: No
  Sender: FDA-Public Use
  Company Number: US-BAXTER-2013BAX040157

PATIENT
  Sex: 0

DRUGS (1)
  1. NEXTERONE_AMIODARONE, HYDROCHLORIDE 50.00 MG/ML_SOLUTION FOR INFUSION_ [Suspect]
     Indication: ATRIAL FIBRILLATION
     Route: 042
     Dates: start: 20131007, end: 20131007

REACTIONS (1)
  - Extravasation [Unknown]
